FAERS Safety Report 15147420 (Version 2)
Quarter: 2019Q1

REPORT INFORMATION
  Report Type: Other
  Country: IT (occurrence: IT)
  Receive Date: 20180716
  Receipt Date: 20190218
  Transmission Date: 20190417
  Serious: Yes (Hospitalization)
  Sender: FDA-Public Use
  Company Number: IT-ACCORD-069601

PATIENT
  Age: 84 Year
  Sex: Female

DRUGS (4)
  1. DOXAZOSIN [Suspect]
     Active Substance: DOXAZOSIN\DOXAZOSIN MESYLATE
     Indication: HYPERTENSION
     Route: 048
     Dates: start: 20170101, end: 20171128
  2. FLECAINIDE [Suspect]
     Active Substance: FLECAINIDE
     Indication: ATRIAL FIBRILLATION
     Route: 048
     Dates: start: 20170101, end: 20171128
  3. VALSARTAN. [Concomitant]
     Active Substance: VALSARTAN
  4. LETROZOLE. [Suspect]
     Active Substance: LETROZOLE
     Indication: BREAST NEOPLASM
     Route: 048
     Dates: start: 20170101, end: 20171128

REACTIONS (5)
  - Tachyarrhythmia [Unknown]
  - Palpitations [Unknown]
  - Atrial fibrillation [Unknown]
  - Gravitational oedema [Unknown]
  - Chest pain [Unknown]

NARRATIVE: CASE EVENT DATE: 20171128
